FAERS Safety Report 5191141-2 (Version None)
Quarter: 2006Q4

REPORT INFORMATION
  Report Type: 
  Country: None (occurrence: None)
  Receive Date: 20061226
  Receipt Date: 20060215
  Transmission Date: 20070319
  Serious: Yes (Hospitalization)
  Sender: FDA-Public Use
  Company Number: PHBS2006JP02629

PATIENT
  Age: 67 Year
  Sex: Female

DRUGS (21)
  1. KLARICID [Suspect]
     Indication: ASTHMA
     Dosage: 400 MG/DAY
     Route: 048
  2. MUCOSAL [Concomitant]
     Indication: ASTHMA
     Dosage: 45 MG, UNK
     Route: 048
  3. UNICON [Concomitant]
     Indication: ASTHMA
     Dosage: 200 MG, UNK
     Route: 048
  4. PURSENNID [Concomitant]
     Indication: ANGINA PECTORIS
     Dosage: 48 MG, UNK
     Route: 048
  5. SIGMART [Concomitant]
     Indication: ANGINA PECTORIS
     Dosage: 10 MG, UNK
     Route: 048
  6. PERSANTIN [Concomitant]
     Indication: ANGINA PECTORIS
     Dosage: 150 MG, UNK
     Route: 048
  7. MEVALOTIN [Concomitant]
     Indication: HYPERLIPIDAEMIA
     Dosage: 5 MG, UNK
  8. GANATON [Concomitant]
     Indication: GASTRITIS
     Dosage: 150 MG, UNK
     Route: 048
  9. SELBEX [Concomitant]
     Indication: GASTRITIS
     Dosage: 150 MG, UNK
  10. GRAMALIL [Concomitant]
     Dosage: 1 TABLET/DAY
     Route: 048
     Dates: start: 20060929
  11. PARLODEL [Suspect]
     Indication: PARKINSON'S DISEASE
     Dosage: 12.5 MG/DAY
     Route: 048
  12. SYMMETREL [Concomitant]
     Indication: PARKINSON'S DISEASE
     Dosage: 150 MG/DAY
     Route: 048
     Dates: start: 20040501, end: 20050904
  13. CABERGOLINE [Suspect]
     Indication: PARKINSON'S DISEASE
     Dosage: 1 MG/DAY
     Route: 048
     Dates: start: 20040501
  14. MADOPAR [Concomitant]
     Indication: PARKINSON'S DISEASE
     Dosage: 6 TABLETS/DAY
     Route: 048
     Dates: start: 20040501
  15. MADOPAR [Concomitant]
     Dosage: 3 TABLETS/DAY
     Route: 048
     Dates: start: 20040911
  16. MADOPAR [Concomitant]
     Dosage: 1.5 TABLETS/DAY
     Route: 048
     Dates: start: 20040918
  17. MADOPAR [Concomitant]
     Dosage: 2 TABLETS/DAY
     Route: 048
  18. FP [Concomitant]
     Indication: PARKINSON'S DISEASE
     Dosage: 2.5 MG/DAY
     Route: 048
     Dates: start: 20040821, end: 20040911
  19. METLIGINE [Concomitant]
     Indication: ORTHOSTATIC HYPOTENSION
     Dosage: 2 MG/DAY
     Route: 048
     Dates: start: 20040501
  20. GRAPEFRUIT JUICE [Suspect]
     Dates: start: 20040301
  21. BRONICA [Concomitant]
     Indication: ASTHMA
     Dosage: 80 MG, UNK
     Route: 048
     Dates: start: 20040929

REACTIONS (19)
  - COMMUNICATION DISORDER [None]
  - DELUSION [None]
  - DRUG EFFECT DECREASED [None]
  - DRUG INTERACTION [None]
  - DYSKINESIA [None]
  - FATIGUE [None]
  - FOOD INTERACTION [None]
  - HALLUCINATION [None]
  - HALLUCINATION, VISUAL [None]
  - INTENTIONAL DRUG MISUSE [None]
  - MOVEMENT DISORDER [None]
  - PSYCHOTIC DISORDER [None]
  - REFUSAL OF TREATMENT BY PATIENT [None]
  - SCAR [None]
  - SCRATCH [None]
  - SELF INJURIOUS BEHAVIOUR [None]
  - THERMAL BURN [None]
  - TREATMENT NONCOMPLIANCE [None]
  - VOMITING [None]
